FAERS Safety Report 15839529 (Version 1)
Quarter: 2019Q1

REPORT INFORMATION
  Report Type: Spontaneous
  Country: US (occurrence: US)
  Receive Date: 20190117
  Receipt Date: 20190117
  Transmission Date: 20190417
  Serious: No
  Sender: FDA-Public Use
  Company Number: US-SIGMAPHARM LABORATORIES, LLC-2018SIG00076

PATIENT
  Age: 49 Year
  Sex: Female
  Weight: 64.4 kg

DRUGS (5)
  1. LIOTHYRONINE SODIUM. [Suspect]
     Active Substance: LIOTHYRONINE SODIUM
     Dosage: 15 ?G, 1X/DAY IN THE MORNING
     Route: 048
     Dates: start: 201810
  2. LIOTHYRONINE SODIUM. [Suspect]
     Active Substance: LIOTHYRONINE SODIUM
     Dosage: 10 ?G, 1X/DAY IN THE AFTERNOON
     Route: 048
     Dates: start: 201810
  3. LIOTHYRONINE SODIUM. [Suspect]
     Active Substance: LIOTHYRONINE SODIUM
     Indication: HYPOTHYROIDISM
     Dosage: 15 ?G, 1X/DAY IN THE MORNING
     Route: 048
  4. SYNTHROID [Concomitant]
     Active Substance: LEVOTHYROXINE SODIUM
     Dosage: 112 ?G, 1X/DAY
  5. LIOTHYRONINE SODIUM. [Suspect]
     Active Substance: LIOTHYRONINE SODIUM
     Dosage: 10 ?G, 1X/DAY IN THE AFTERNOON
     Route: 048

REACTIONS (6)
  - Joint stiffness [Recovering/Resolving]
  - Drug ineffective [Recovering/Resolving]
  - Alopecia [Recovering/Resolving]
  - Arthralgia [Recovering/Resolving]
  - Feeling abnormal [Recovering/Resolving]
  - Somnolence [Recovering/Resolving]

NARRATIVE: CASE EVENT DATE: 201811
